FAERS Safety Report 10142111 (Version 1)
Quarter: 2014Q2

REPORT INFORMATION
  Report Type: Spontaneous
  Country: US (occurrence: US)
  Receive Date: 20140429
  Receipt Date: 20140429
  Transmission Date: 20141212
  Serious: No
  Sender: FDA-Public Use
  Company Number: US-TEVA-477264USA

PATIENT
  Sex: Female
  Weight: 68.1 kg

DRUGS (13)
  1. NUVIGIL [Suspect]
     Indication: FATIGUE
  2. CLONAZEPAM [Concomitant]
  3. ALPRAZOLAM [Concomitant]
  4. ROPINIROLE [Concomitant]
  5. MECLIZINE [Concomitant]
  6. PRISTIQ [Concomitant]
  7. TRAZODONE [Concomitant]
  8. SUMATRIPTAN [Concomitant]
  9. ZONISAMIDE [Concomitant]
  10. LEVODOPA-CARBIDOPA [Concomitant]
  11. BENZTROPINE MESYLATE [Concomitant]
  12. CARISOPRODOL [Concomitant]
  13. GABAPENTIN [Concomitant]

REACTIONS (1)
  - Off label use [Unknown]
